FAERS Safety Report 7259283-5 (Version None)
Quarter: 2011Q1

REPORT INFORMATION
  Report Type: 
  Country: None (occurrence: None)
  Receive Date: 20110129
  Receipt Date: 20100727
  Transmission Date: 20110831
  Serious: No
  Sender: FDA-Public Use
  Company Number: US-ABBOTT-10P-163-0660994-00

PATIENT
  Sex: Female

DRUGS (2)
  1. HUMIRA [Suspect]
     Indication: PSORIATIC ARTHROPATHY
     Dates: end: 20100701
  2. HUMIRA [Suspect]
     Indication: PSORIASIS

REACTIONS (3)
  - ABDOMINAL PAIN LOWER [None]
  - DRUG INEFFECTIVE [None]
  - PAIN [None]
